FAERS Safety Report 12302211 (Version 2)
Quarter: 2016Q4

REPORT INFORMATION
  Report Type: Spontaneous
  Country: US (occurrence: US)
  Receive Date: 20160425
  Receipt Date: 20161111
  Transmission Date: 20170207
  Serious: No
  Sender: FDA-Public Use
  Company Number: US-ALEXION-A201602876

PATIENT
  Sex: Female

DRUGS (1)
  1. SOLIRIS [Suspect]
     Active Substance: ECULIZUMAB
     Indication: HAEMOLYTIC URAEMIC SYNDROME
     Route: 042

REACTIONS (7)
  - Balance disorder [Unknown]
  - Eye swelling [Unknown]
  - Dizziness [Unknown]
  - Gait disturbance [Unknown]
  - Viral infection [Unknown]
  - Fatigue [Unknown]
  - Decreased appetite [Unknown]
